FAERS Safety Report 12287897 (Version 1)
Quarter: 2016Q2

REPORT INFORMATION
  Report Type: Other
  Country: FR (occurrence: FR)
  Receive Date: 20160420
  Receipt Date: 20160420
  Transmission Date: 20160815
  Serious: Yes (Hospitalization)
  Sender: FDA-Public Use
  Company Number: FR-SYMPLMED PHARMACEUTICALS-2016SYMPLMED000196

PATIENT

DRUGS (8)
  1. LASILIX                            /00032601/ [Suspect]
     Active Substance: FUROSEMIDE
     Dosage: 40 MG, QD
     Route: 048
     Dates: start: 20151215, end: 20151230
  2. LASILIX                            /00032601/ [Suspect]
     Active Substance: FUROSEMIDE
     Indication: PRODUCT USED FOR UNKNOWN INDICATION
     Dosage: 40 MG, QD
     Route: 048
     Dates: start: 20150925, end: 20151027
  3. LOXEN                              /00639802/ [Concomitant]
     Active Substance: NICARDIPINE
     Indication: PRODUCT USED FOR UNKNOWN INDICATION
     Dosage: 50 MG, BID
     Dates: start: 20150925
  4. LASILIX                            /00032601/ [Suspect]
     Active Substance: FUROSEMIDE
     Dosage: 20 MG, QD
     Route: 048
     Dates: start: 20151230
  5. COVERSYL [Suspect]
     Active Substance: PERINDOPRIL
     Indication: PRODUCT USED FOR UNKNOWN INDICATION
     Dosage: 4 MG, QD
     Route: 048
     Dates: start: 20150925, end: 20151230
  6. KARDEGIC [Concomitant]
     Active Substance: ASPIRIN LYSINE
     Indication: PRODUCT USED FOR UNKNOWN INDICATION
     Dosage: 75 MG, QD
     Dates: start: 20150925, end: 20151215
  7. EFFEXOR [Concomitant]
     Active Substance: VENLAFAXINE HYDROCHLORIDE
     Indication: PRODUCT USED FOR UNKNOWN INDICATION
     Dosage: 37.5 MG, QD
     Dates: end: 20151027
  8. TERALITHE [Suspect]
     Active Substance: LITHIUM CARBONATE
     Indication: DEPRESSION
     Dosage: 1.5 (400 MG) DF, QD
     Route: 048
     Dates: end: 20151228

REACTIONS (10)
  - Vomiting [Recovered/Resolved]
  - General physical health deterioration [Unknown]
  - Faecaloma [Unknown]
  - Nausea [Recovered/Resolved]
  - Diarrhoea [Unknown]
  - Acute kidney injury [Recovered/Resolved]
  - Dysarthria [Recovered/Resolved]
  - Overdose [Unknown]
  - Dehydration [Unknown]
  - Drug interaction [Unknown]

NARRATIVE: CASE EVENT DATE: 201509
